FAERS Safety Report 5075897-5 (Version None)
Quarter: 2006Q3

REPORT INFORMATION
  Report Type: 
  Country: None (occurrence: None)
  Receive Date: 20060809
  Receipt Date: 20060801
  Transmission Date: 20061208
  Serious: Yes (Disabling)
  Sender: FDA-Public Use
  Company Number: US-BRISTOL-MYERS SQUIBB COMPANY-13469309

PATIENT
  Age: 47 Year
  Sex: Female
  Weight: 77 kg

DRUGS (7)
  1. CYTOXAN [Suspect]
     Indication: BREAST CANCER
     Route: 042
     Dates: start: 20050801, end: 20050915
  2. FLUOROURACIL [Suspect]
     Indication: BREAST CANCER
     Route: 042
     Dates: start: 20050801, end: 20050915
  3. EPIRUBICIN [Suspect]
     Indication: BREAST CANCER
     Route: 042
     Dates: start: 20050801, end: 20050915
  4. ALOXI [Concomitant]
     Dates: start: 20050915, end: 20050915
  5. BENADRYL ALLERGY ORAL LIQUID [Concomitant]
     Dates: start: 20050915, end: 20050915
  6. CIMETIDINE [Concomitant]
     Dates: start: 20050915, end: 20050915
  7. DECADRON [Concomitant]
     Dates: start: 20050915, end: 20050915

REACTIONS (9)
  - ANXIETY [None]
  - APHASIA [None]
  - CATHETER SITE PAIN [None]
  - CONTUSION [None]
  - EXTRAVASATION [None]
  - MOTOR DYSFUNCTION [None]
  - PAIN [None]
  - THERMAL BURN [None]
  - VASCULAR RUPTURE [None]
